FAERS Safety Report 9611585 (Version 2)
Quarter: 2013Q4

REPORT INFORMATION
  Report Type: Report from Study
  Country: CA (occurrence: CA)
  Receive Date: 20131010
  Receipt Date: 20131122
  Transmission Date: 20140711
  Serious: Yes (Death)
  Sender: FDA-Public Use
  Company Number: PHHY2013CA113401

PATIENT
  Sex: Male

DRUGS (15)
  1. CLOZARIL [Suspect]
     Indication: PSYCHOTIC DISORDER
     Dosage: 12.5 MG, QHS
     Route: 048
     Dates: start: 201305
  2. CLOZARIL [Suspect]
     Indication: DEMENTIA WITH LEWY BODIES
  3. WELLBUTRIN [Concomitant]
     Dosage: UNK
  4. EXELON [Concomitant]
     Dosage: UNK
  5. MELATONIN [Concomitant]
     Dosage: UNK
  6. ALENDRONATE [Concomitant]
     Dosage: UNK
  7. VITAMIN B12 [Concomitant]
     Dosage: UNK
  8. AVODART [Concomitant]
     Dosage: UNK
  9. PEGALAX [Concomitant]
     Dosage: UNK
  10. FLOMAX [Concomitant]
     Dosage: UNK
  11. VITAMIN D [Concomitant]
     Dosage: UNK
  12. SINEMET [Concomitant]
     Dosage: UNK
  13. DOCUSATE [Concomitant]
     Dosage: UNK
  14. CAPTOPRIL [Concomitant]
     Dosage: UNK
  15. CALCIUM CARBONATE [Concomitant]
     Dosage: UNK

REACTIONS (1)
  - Pulmonary embolism [Fatal]
